FAERS Safety Report 9442287 (Version 1)
Quarter: 2013Q3

REPORT INFORMATION
  Report Type: Spontaneous
  Country: US (occurrence: US)
  Receive Date: 20130806
  Receipt Date: 20130806
  Transmission Date: 20140515
  Serious: No
  Sender: FDA-Public Use
  Company Number: US-GLAXOSMITHKLINE-A0988471A

PATIENT
  Age: 70 Year
  Sex: Female

DRUGS (9)
  1. ADVAIR [Suspect]
     Indication: COUGH
     Dosage: 1PUFF TWICE PER DAY
     Route: 055
     Dates: start: 20120206
  2. JANUVIA [Suspect]
     Dosage: 100MG PER DAY
  3. SPIRIVA [Concomitant]
  4. LOPRESSOR [Concomitant]
  5. LASIX [Concomitant]
  6. UNKNOWN MEDICATION [Concomitant]
  7. LEVOXYL [Concomitant]
  8. NEXIUM [Concomitant]
  9. JANUVIA [Concomitant]

REACTIONS (1)
  - Blood glucose increased [Unknown]
